FAERS Safety Report 6510092-1 (Version None)
Quarter: 2009Q4

REPORT INFORMATION
  Report Type: 
  Country: None (occurrence: None)
  Receive Date: 20091217
  Receipt Date: 20091202
  Transmission Date: 20100525
  Serious: Yes (Hospitalization, Other)
  Sender: FDA-Public Use
  Company Number: AUR-APL-2009-01469

PATIENT
  Age: 30 Year
  Sex: Female

DRUGS (3)
  1. CEFOTAXIME SODIUM [Suspect]
     Indication: SINUSITIS
     Dosage: 1G, 6 TIMES A DAY, IV
     Route: 042
  2. CIPROFLOXACIN HCL [Suspect]
     Indication: SINUSITIS
     Dosage: 500MG BID, OS
  3. FOSFOMYCIN [Suspect]
     Indication: SINUSITIS
     Dosage: 4 G - TID - IV
     Route: 042

REACTIONS (1)
  - ACUTE GENERALISED EXANTHEMATOUS PUSTULOSIS [None]
